FAERS Safety Report 12706120 (Version 2)
Quarter: 2016Q3

REPORT INFORMATION
  Report Type: Spontaneous
  Country: US (occurrence: US)
  Receive Date: 20160901
  Receipt Date: 20160901
  Transmission Date: 20161109
  Serious: No
  Sender: FDA-Public Use
  Company Number: US-JAZZ-2016-US-008072

PATIENT
  Sex: Female

DRUGS (13)
  1. XYREM [Suspect]
     Active Substance: SODIUM OXYBATE
     Dosage: DOSE ADJUSTMENTS
     Route: 048
  2. XYREM [Suspect]
     Active Substance: SODIUM OXYBATE
     Dosage: 4.5 G, BID
     Route: 048
     Dates: start: 201402
  3. VITAMIN D [Concomitant]
     Active Substance: CHOLECALCIFEROL
  4. ARMOUR THYROID [Concomitant]
     Active Substance: THYROID, PORCINE
  5. ESTROGEN W/PROGESTERONE [Concomitant]
  6. ADDERALL [Concomitant]
     Active Substance: AMPHETAMINE ASPARTATE\AMPHETAMINE SULFATE\DEXTROAMPHETAMINE SACCHARATE\DEXTROAMPHETAMINE SULFATE
  7. MOBIC [Concomitant]
     Active Substance: MELOXICAM
  8. NEURONTIN [Concomitant]
     Active Substance: GABAPENTIN
  9. XYREM [Suspect]
     Active Substance: SODIUM OXYBATE
     Indication: NARCOLEPSY
     Dosage: 2.25 G, BID
     Route: 048
     Dates: start: 201401, end: 201402
  10. LEXAPRO [Concomitant]
     Active Substance: ESCITALOPRAM OXALATE
  11. VITAMIN B12 [Concomitant]
     Active Substance: CYANOCOBALAMIN
  12. HYDROCODONE/ACETAMINOPHEN [Concomitant]
     Active Substance: ACETAMINOPHEN\HYDROCODONE
  13. RESTORIL [Concomitant]
     Active Substance: TEMAZEPAM

REACTIONS (3)
  - Bruxism [Not Recovered/Not Resolved]
  - Intentional product use issue [Unknown]
  - Pain in jaw [Not Recovered/Not Resolved]
